FAERS Safety Report 8523137-4 (Version None)
Quarter: 2012Q3

REPORT INFORMATION
  Report Type: 
  Country: None (occurrence: None)
  Receive Date: 20120713
  Receipt Date: 20120713
  Transmission Date: 20120928
  Serious: No
  Sender: FDA-Public Use
  Company Number: None

PATIENT
  Age: 84 Year
  Sex: Male
  Weight: 86.3 kg

DRUGS (2)
  1. BICALUTAMIDE [Suspect]
     Indication: PAIN
     Dosage: 5-7 TAB EVERY DAY PO
     Route: 048
     Dates: start: 20000101, end: 20120329
  2. ABIRATERONE [Suspect]

REACTIONS (2)
  - INTERNATIONAL NORMALISED RATIO INCREASED [None]
  - ANAEMIA [None]
